FAERS Safety Report 8271427-5 (Version None)
Quarter: 2012Q2

REPORT INFORMATION
  Report Type: 
  Country: None (occurrence: None)
  Receive Date: 20120410
  Receipt Date: 20120405
  Transmission Date: 20120825
  Serious: Yes (Hospitalization, Other)
  Sender: FDA-Public Use
  Company Number: PHHY2011IE110376

PATIENT
  Sex: Female

DRUGS (10)
  1. TOVIAZ [Concomitant]
     Indication: URINARY INCONTINENCE
     Dosage: 4 MG, BID
     Route: 048
  2. BRICANYL [Concomitant]
     Indication: ASTHMA
  3. GILENYA [Suspect]
     Indication: RELAPSING-REMITTING MULTIPLE SCLEROSIS
     Dosage: 0.5 MG, QD
     Route: 048
     Dates: start: 20111216, end: 20120118
  4. SYMBICORT [Concomitant]
     Indication: ASTHMA
  5. PROVIGIL [Concomitant]
     Indication: MULTIPLE SCLEROSIS
     Dosage: 200 MG, DAILY
     Route: 048
  6. CARBAMAZEPINE [Concomitant]
     Indication: EPILEPSY
  7. IBUPROFEN [Concomitant]
     Indication: PAIN
     Route: 048
  8. TEGRETOL [Concomitant]
     Indication: EPILEPSY
     Dosage: 600 MG, BID
     Route: 048
  9. PULMICORT [Concomitant]
  10. VITAMIN D [Concomitant]
     Indication: MULTIPLE SCLEROSIS
     Route: 048

REACTIONS (18)
  - PYREXIA [None]
  - ANXIETY [None]
  - DIZZINESS [None]
  - OROPHARYNGEAL PAIN [None]
  - WEIGHT DECREASED [None]
  - DYSPNOEA [None]
  - PERIPHERAL COLDNESS [None]
  - HYPOTENSION [None]
  - HEART RATE INCREASED [None]
  - CHEST PAIN [None]
  - WHEEZING [None]
  - LOSS OF CONSCIOUSNESS [None]
  - INFLUENZA LIKE ILLNESS [None]
  - HEADACHE [None]
  - MUSCULAR WEAKNESS [None]
  - ASTHENIA [None]
  - ASTHMA [None]
  - PALPITATIONS [None]
